FAERS Safety Report 8933526 (Version 1)
Quarter: 2012Q4

REPORT INFORMATION
  Report Type: 
  Country: US (occurrence: US)
  Receive Date: 20121128
  Receipt Date: 20121128
  Transmission Date: 20130627
  Serious: No
  Sender: FDA-Public Use
  Company Number: US-ABBOTT-12P-163-0999754-00

PATIENT
  Sex: Male
  Weight: 122.58 kg

DRUGS (5)
  1. ANDROGEL [Suspect]
     Indication: BLOOD TESTOSTERONE DECREASED
     Dosage: 3 pumps daily
     Route: 061
     Dates: start: 201208
  2. BUPROPION [Concomitant]
     Indication: DEPRESSION
  3. TOPAMAX [Concomitant]
     Indication: DEPRESSION
  4. LEVOTHYROXINE [Concomitant]
     Indication: THYROID DISORDER
     Route: 048
  5. LIOTHYRONINE [Concomitant]
     Indication: THYROID DISORDER

REACTIONS (3)
  - Asthenia [Not Recovered/Not Resolved]
  - Drug ineffective [Not Recovered/Not Resolved]
  - Weight increased [Not Recovered/Not Resolved]
